FAERS Safety Report 8243814-2 (Version None)
Quarter: 2012Q1

REPORT INFORMATION
  Report Type: 
  Country: None (occurrence: None)
  Receive Date: 20120329
  Receipt Date: 20120206
  Transmission Date: 20120608
  Serious: No
  Sender: FDA-Public Use
  Company Number: US-MYLANLABS-2012S1002223

PATIENT
  Sex: Female

DRUGS (1)
  1. EMSAM [Suspect]
     Dates: start: 20111025, end: 20120130

REACTIONS (7)
  - MYALGIA [None]
  - INSOMNIA [None]
  - HEADACHE [None]
  - SUICIDAL IDEATION [None]
  - PHOTOSENSITIVITY REACTION [None]
  - FATIGUE [None]
  - NAUSEA [None]
